FAERS Safety Report 4462252-1 (Version None)
Quarter: 2004Q3

REPORT INFORMATION
  Report Type: 
  Country: None (occurrence: None)
  Receive Date: 20040929
  Receipt Date: 20040923
  Transmission Date: 20050211
  Serious: Yes (Other)
  Sender: FDA-Public Use
  Company Number: US-GLAXOSMITHKLINE-A0527512A

PATIENT
  Sex: Female

DRUGS (1)
  1. WELLBUTRIN XL [Suspect]
     Indication: DRUG USE FOR UNKNOWN INDICATION
     Route: 048

REACTIONS (11)
  - AGITATION [None]
  - ANGER [None]
  - DEPRESSION [None]
  - EATING DISORDER [None]
  - FEELING HOT [None]
  - HYPERHIDROSIS [None]
  - INSOMNIA [None]
  - NERVOUSNESS [None]
  - PANIC ATTACK [None]
  - RESTLESSNESS [None]
  - SUICIDAL IDEATION [None]
